FAERS Safety Report 23774672 (Version 1)
Quarter: 2024Q2

REPORT INFORMATION
  Report Type: Spontaneous
  Country: US (occurrence: None)
  Receive Date: 20240422
  Receipt Date: 20240422
  Transmission Date: 20240716
  Serious: Yes (Hospitalization)
  Sender: FDA-Public Use
  Company Number: None

PATIENT
  Age: 31 Year
  Weight: 56.25 kg

DRUGS (7)
  1. FAMOTIDINE [Suspect]
     Active Substance: FAMOTIDINE
     Indication: Gastric ulcer
     Dosage: 1 TABLET TWICE  A DAY ORAL
     Route: 048
     Dates: start: 20240412, end: 20240420
  2. FAMOTIDINE [Suspect]
     Active Substance: FAMOTIDINE
     Indication: Gastrooesophageal reflux disease
  3. FAMOTIDINE [Suspect]
     Active Substance: FAMOTIDINE
     Indication: Oesophageal pain
  4. OMEPRAZOLE [Suspect]
     Active Substance: OMEPRAZOLE
  5. LAMOTRIGINE [Concomitant]
     Active Substance: LAMOTRIGINE
  6. NALTREXONE [Concomitant]
     Active Substance: NALTREXONE
  7. CLARITIN [Concomitant]
     Active Substance: LORATADINE

REACTIONS (5)
  - Chest pain [None]
  - Feeling abnormal [None]
  - Incoherent [None]
  - Therapy interrupted [None]
  - Blood pressure increased [None]

NARRATIVE: CASE EVENT DATE: 20240416
